FAERS Safety Report 7352938-3 (Version None)
Quarter: 2011Q1

REPORT INFORMATION
  Report Type: 
  Country: None (occurrence: None)
  Receive Date: 20110315
  Receipt Date: 20110310
  Transmission Date: 20110831
  Serious: Yes (Other)
  Sender: FDA-Public Use
  Company Number: CH-ROCHE-764918

PATIENT
  Sex: Male

DRUGS (2)
  1. LEXOTANIL [Suspect]
     Route: 048
     Dates: start: 20110223
  2. ROCEPHIN [Suspect]
     Route: 042
     Dates: start: 20110213, end: 20110218

REACTIONS (1)
  - COMA [None]
